FAERS Safety Report 7327293-5 (Version None)
Quarter: 2011Q1

REPORT INFORMATION
  Report Type: 
  Country: None (occurrence: None)
  Receive Date: 20110302
  Receipt Date: 20110222
  Transmission Date: 20110831
  Serious: Yes (Hospitalization, Other)
  Sender: FDA-Public Use
  Company Number: US-AMGEN-USASP2010009338

PATIENT
  Age: 52 Year
  Sex: Female

DRUGS (1)
  1. ENBREL [Suspect]
     Indication: RHEUMATOID ARTHRITIS
     Dosage: 50 MG, QWK
     Dates: start: 20060101, end: 20110219

REACTIONS (16)
  - DEHYDRATION [None]
  - SENSORY LOSS [None]
  - CELLULITIS [None]
  - APHONIA [None]
  - APHAGIA [None]
  - INJECTION SITE INJURY [None]
  - SINUSITIS [None]
  - WEIGHT DECREASED [None]
  - NASOPHARYNGITIS [None]
  - PAIN IN EXTREMITY [None]
  - MOVEMENT DISORDER [None]
  - DECREASED APPETITE [None]
  - ASTHMA [None]
  - EPISTAXIS [None]
  - ATRIAL FIBRILLATION [None]
  - DYSPNOEA [None]
